FAERS Safety Report 23577459 (Version 4)
Quarter: 2024Q4

REPORT INFORMATION
  Report Type: Spontaneous
  Country: JP (occurrence: JP)
  Receive Date: 20240228
  Receipt Date: 20241024
  Transmission Date: 20250114
  Serious: Yes (Hospitalization, Other)
  Sender: MERCK
  Company Number: JP-MSD-2309JPN001237J

PATIENT
  Age: 7 Decade
  Sex: Female

DRUGS (7)
  1. KEYTRUDA [Suspect]
     Active Substance: PEMBROLIZUMAB
     Indication: Uterine cancer
     Dosage: 200 MILLIGRAM, Q3W
     Route: 041
     Dates: start: 20230828, end: 2024
  2. KEYTRUDA [Suspect]
     Active Substance: PEMBROLIZUMAB
     Dosage: 200 MILLIGRAM, Q3W
     Route: 041
     Dates: start: 2024, end: 20240126
  3. LENVATINIB MESYLATE [Suspect]
     Active Substance: LENVATINIB MESYLATE
     Indication: Uterine cancer
     Dosage: 14 MILLIGRAM, QD
     Route: 048
     Dates: start: 20230828, end: 20230908
  4. LENVATINIB MESYLATE [Suspect]
     Active Substance: LENVATINIB MESYLATE
     Dosage: 10 MILLIGRAM
     Route: 048
     Dates: start: 20230929
  5. LENVATINIB MESYLATE [Suspect]
     Active Substance: LENVATINIB MESYLATE
     Dosage: 12 MILLIGRAM, QD
     Route: 048
     Dates: end: 20240126
  6. LENVATINIB MESYLATE [Suspect]
     Active Substance: LENVATINIB MESYLATE
     Dosage: 8 MILLIGRAM
     Route: 048
     Dates: start: 2024, end: 20240926
  7. ELIQUIS [Concomitant]
     Active Substance: APIXABAN
     Indication: Cardiac ventricular thrombosis
     Dosage: 5 MILLIGRAM, BID
     Route: 048
     Dates: start: 202306

REACTIONS (16)
  - Adrenocortical insufficiency acute [Unknown]
  - Oliguria [Recovered/Resolved]
  - Arthralgia [Recovered/Resolved]
  - Renal impairment [Unknown]
  - Immune-mediated hypothyroidism [Not Recovered/Not Resolved]
  - Malaise [Recovered/Resolved]
  - Hypotension [Recovered/Resolved]
  - Hyperkalaemia [Recovered/Resolved]
  - Osteoarthritis [Unknown]
  - C-reactive protein increased [Recovered/Resolved]
  - Epistaxis [Recovered/Resolved]
  - Hepatic function abnormal [Unknown]
  - Eosinophil count increased [Unknown]
  - Hypertension [Recovered/Resolved]
  - Dysphonia [Recovered/Resolved]
  - Palmar-plantar erythrodysaesthesia syndrome [Recovering/Resolving]

NARRATIVE: CASE EVENT DATE: 20230901
